FAERS Safety Report 8215628-0 (Version None)
Quarter: 2012Q1

REPORT INFORMATION
  Report Type: 
  Country: None (occurrence: None)
  Receive Date: 20120316
  Receipt Date: 20120306
  Transmission Date: 20120608
  Serious: Yes (Hospitalization, Other)
  Sender: FDA-Public Use
  Company Number: DE-FRI-1000029073

PATIENT

DRUGS (2)
  1. ESCITALOPRAM [Suspect]
     Route: 064
  2. ESCITALOPRAM [Suspect]
     Route: 063

REACTIONS (5)
  - EXPOSURE DURING BREAST FEEDING [None]
  - FOETAL EXPOSURE DURING PREGNANCY [None]
  - RESTLESSNESS [None]
  - NEONATAL DISORDER [None]
  - FEEDING DISORDER NEONATAL [None]
